FAERS Safety Report 5865493-1 (Version None)
Quarter: 2008Q3

REPORT INFORMATION
  Report Type: 
  Country: None (occurrence: None)
  Receive Date: 20080829
  Receipt Date: 20080825
  Transmission Date: 20090109
  Serious: Yes (Other)
  Sender: FDA-Public Use
  Company Number: IT-BRISTOL-MYERS SQUIBB COMPANY-14315899

PATIENT

DRUGS (4)
  1. CYCLOPHOSPHAMIDE [Suspect]
     Indication: SYSTEMIC LUPUS ERYTHEMATOSUS
  2. CYCLOPHOSPHAMIDE [Suspect]
     Indication: SJOGREN'S SYNDROME
  3. STEROIDS [Suspect]
     Indication: SYSTEMIC LUPUS ERYTHEMATOSUS
  4. STEROIDS [Suspect]
     Indication: SJOGREN'S SYNDROME

REACTIONS (1)
  - FIBROUS HISTIOCYTOMA [None]
